FAERS Safety Report 9360022 (Version 3)
Quarter: 2013Q3

REPORT INFORMATION
  Report Type: Report from Study
  Country: BR (occurrence: BR)
  Receive Date: 20130621
  Receipt Date: 20130822
  Transmission Date: 20140515
  Serious: Yes (Hospitalization, Other)
  Sender: FDA-Public Use
  Company Number: PHHY2013BR062843

PATIENT
  Sex: Male
  Weight: 62 kg

DRUGS (2)
  1. DIOVAN [Suspect]
     Dosage: 320 MG, UNK
     Route: 048
  2. EXELON [Suspect]
     Indication: DEMENTIA ALZHEIMER^S TYPE
     Dosage: 1.5 MG, 1 TABLET DAILY
     Route: 048

REACTIONS (4)
  - Fall [Recovered/Resolved]
  - Blood pressure increased [Recovered/Resolved]
  - Feeling abnormal [Recovered/Resolved]
  - Hallucination [Recovered/Resolved]
